FAERS Safety Report 8506032 (Version 3)
Quarter: 2014Q1

REPORT INFORMATION
  Report Type: Report from Study
  Country: FR (occurrence: FR)
  Receive Date: 20120412
  Receipt Date: 20140206
  Transmission Date: 20141002
  Serious: Yes (Hospitalization)
  Sender: FDA-Public Use
  Company Number: PHHY2012FR029469

PATIENT
  Age: 78 Year
  Sex: Female
  Weight: 55 kg

DRUGS (15)
  1. ACLASTA/ZOLEDRONATE [Suspect]
     Indication: OSTEOPOROSIS POSTMENOPAUSAL
     Dosage: UNK UKN, UNK
     Route: 042
     Dates: start: 20120207
  2. SPIRIVA ^BOEHRINGER INGELHEIM^ [Concomitant]
     Dosage: UNK UKN, UNK
     Dates: start: 2005
  3. SERETIDE [Concomitant]
     Dosage: UNK UKN, UNK
     Dates: start: 2005, end: 2012
  4. SERETIDE [Concomitant]
     Dosage: UNK UKN, UNK
  5. OMEPRAZOLE [Concomitant]
     Indication: GASTRITIS
     Dosage: UNK UKN, QD
     Dates: start: 2005
  6. VENTOLINE [Concomitant]
     Dosage: UNK UKN, UNK
     Dates: start: 2005
  7. PARACETAMOL [Concomitant]
     Dosage: UNK UKN, UNK
  8. UVEDOSE [Concomitant]
     Dosage: UNK UKN, UNK
     Dates: start: 2011, end: 201205
  9. UVEDOSE [Concomitant]
     Dosage: UNK
  10. CALTRATE [Concomitant]
     Dosage: UNK UKN, UNK
     Dates: start: 2012, end: 201203
  11. CALTRATE [Concomitant]
     Dosage: UNK
  12. ONBREZ [Concomitant]
     Dosage: UNK UKN, UNK
     Dates: start: 2012, end: 2013
  13. PREVISCAN [Concomitant]
     Dosage: UNK UKN, UNK
     Dates: start: 2012
  14. PROZAC [Concomitant]
     Dosage: UNK UKN, UNK
     Dates: start: 2013
  15. DIGOXINE [Concomitant]
     Dosage: UNK UKN, UNK
     Dates: start: 2013

REACTIONS (3)
  - Brown-Sequard syndrome [Recovered/Resolved with Sequelae]
  - Myelitis [Recovering/Resolving]
  - Diplegia [Unknown]
